FAERS Safety Report 4711421-1 (Version None)
Quarter: 2005Q3

REPORT INFORMATION
  Report Type: 
  Country: None (occurrence: None)
  Receive Date: 20050711
  Receipt Date: 20050629
  Transmission Date: 20060218
  Serious: Yes (Death, Hospitalization)
  Sender: FDA-Public Use
  Company Number: US-SHR-03-016755

PATIENT
  Age: 45 Year
  Sex: Male
  Weight: 75.7 kg

DRUGS (9)
  1. BETASERON [Suspect]
     Indication: MULTIPLE SCLEROSIS
     Dosage: 8 MIU, EVERY 2DM SUBCUTANEOUS
     Route: 058
     Dates: start: 19930901, end: 20040701
  2. TYLENOL [Concomitant]
  3. TYLENOL PM (DIPHENHYDRAMINE) [Concomitant]
  4. BACLOFEN [Concomitant]
  5. NEURONTIN [Concomitant]
  6. CORTICOSTEROID NOS (CORTICOSTEROID NOS) [Concomitant]
  7. LASIX [Concomitant]
  8. ALDACTONE [Concomitant]
  9. TOPAMAX [Concomitant]

REACTIONS (4)
  - GASTRITIS [None]
  - HEPATIC CIRRHOSIS [None]
  - HEPATIC FAILURE [None]
  - INJECTION SITE PAIN [None]
